FAERS Safety Report 11882617 (Version 1)
Quarter: 2015Q4

REPORT INFORMATION
  Report Type: Spontaneous
  Country: US (occurrence: None)
  Receive Date: 20151230
  Receipt Date: 20151230
  Transmission Date: 20160305
  Serious: Yes (Other)
  Sender: FDA-Public Use
  Company Number: None

PATIENT
  Age: 2 Year
  Sex: Female

DRUGS (2)
  1. SINGULAIR [Suspect]
     Active Substance: MONTELUKAST SODIUM
     Indication: ASTHMA
     Dosage: 1 GRANULE PACKET, ONCE DAILY, TAKEN BY MOUTH
     Route: 048
  2. SINGULAIR [Suspect]
     Active Substance: MONTELUKAST SODIUM
     Indication: MULTIPLE ALLERGIES
     Dosage: 1 GRANULE PACKET, ONCE DAILY, TAKEN BY MOUTH
     Route: 048

REACTIONS (7)
  - Somnambulism [None]
  - Suicidal ideation [None]
  - Hallucination [None]
  - Sleep terror [None]
  - Depression [None]
  - Cerebral disorder [None]
  - Aggression [None]

NARRATIVE: CASE EVENT DATE: 20150107
